FAERS Safety Report 17988103 (Version 1)
Quarter: 2020Q3

REPORT INFORMATION
  Report Type: Spontaneous
  Country: US (occurrence: US)
  Receive Date: 20200706
  Receipt Date: 20200706
  Transmission Date: 20201103
  Serious: Yes (Other)
  Sender: FDA-Public Use
  Company Number: None

PATIENT
  Age: 11 Year
  Sex: Female

DRUGS (6)
  1. CYPROHEPTADINE 4MG [Concomitant]
  2. SYMDEKO [Suspect]
     Active Substance: IVACAFTOR\TEZACAFTOR
     Indication: CYSTIC FIBROSIS
     Route: 048
  3. ALBUTEROL 0.083% NEBULIZER SOLUTION [Concomitant]
  4. ZENPEP 20,000 [Concomitant]
  5. DEKAS PLUS [Concomitant]
  6. SODIUM CHLORIDE 7% NEBULIZER SOLUTION [Concomitant]

REACTIONS (3)
  - Pain [None]
  - Abdominal distension [None]
  - Abdominal discomfort [None]
